FAERS Safety Report 15473437 (Version 3)
Quarter: 2019Q3

REPORT INFORMATION
  Report Type: Spontaneous
  Country: IT (occurrence: IT)
  Receive Date: 20181008
  Receipt Date: 20190905
  Transmission Date: 20191004
  Serious: Yes (Other)
  Sender: FDA-Public Use
  Company Number: IT-SA-2018SA273349

PATIENT
  Age: 28 Year
  Sex: Female

DRUGS (6)
  1. LEMTRADA [Suspect]
     Active Substance: ALEMTUZUMAB
     Indication: MULTIPLE SCLEROSIS
     Dosage: UNK
     Route: 041
     Dates: start: 201808
  2. PERFALGAN [Concomitant]
     Active Substance: ACETAMINOPHEN
     Dosage: UNK, UNK
     Route: 065
     Dates: start: 2018
  3. SOLU-MEDROL [Concomitant]
     Active Substance: METHYLPREDNISOLONE SODIUM SUCCINATE
     Dosage: 1 G, UNK
     Route: 065
     Dates: start: 2018
  4. ACYCLOVIR [ACICLOVIR] [Concomitant]
     Active Substance: ACYCLOVIR
     Dosage: 400 MG, QD FOR 4 WEEK
     Dates: start: 201808
  5. TRIMETON [Concomitant]
     Active Substance: CHLORPHENIRAMINE MALEATE
     Dosage: UNK, UNK
     Route: 065
     Dates: start: 2018
  6. LEMTRADA [Suspect]
     Active Substance: ALEMTUZUMAB
     Route: 041

REACTIONS (3)
  - Eosinophilia [Recovered/Resolved]
  - Lymphopenia [Unknown]
  - Neutropenia [Recovered/Resolved]

NARRATIVE: CASE EVENT DATE: 2018
